FAERS Safety Report 5603346-4 (Version None)
Quarter: 2008Q1

REPORT INFORMATION
  Report Type: 
  Country: None (occurrence: None)
  Receive Date: 20080122
  Receipt Date: 20080109
  Transmission Date: 20080703
  Serious: Yes (Life-Threatening)
  Sender: FDA-Public Use
  Company Number: 1-15686827

PATIENT
  Age: 19 Year
  Sex: Female
  Weight: 55 kg

DRUGS (7)
  1. AMMONUL [Suspect]
     Indication: HYPERAMMONAEMIA
     Dosage: 1 G DAILY
     Dates: start: 20080105
  2. POSOCONAZOLE [Suspect]
     Indication: PROPHYLAXIS
     Dosage: 400 MG
     Dates: start: 20071224, end: 20080108
  3. NEXIUM [Suspect]
     Indication: PROPHYLAXIS
     Dosage: 40 MG
     Dates: start: 20071226
  4. TIENAM (IMIPENEM AND CILASTATIN SODIUM) [Concomitant]
  5. ORGARAN (DANAPROID) [Concomitant]
  6. LEVOCARNIL (L-CARNITINE) [Concomitant]
  7. ARGININE [Concomitant]

REACTIONS (5)
  - APLASIA [None]
  - COMA [None]
  - HAEMORRHAGE [None]
  - SEPSIS [None]
  - THROMBOCYTOPENIA [None]
